FAERS Safety Report 13209748 (Version 1)
Quarter: 2017Q1

REPORT INFORMATION
  Report Type: Spontaneous
  Country: US (occurrence: US)
  Receive Date: 20170209
  Receipt Date: 20170209
  Transmission Date: 20170428
  Serious: Yes (Hospitalization)
  Sender: FDA-Public Use
  Company Number: None

PATIENT
  Age: 56 Year
  Sex: Female

DRUGS (1)
  1. VANCOMYCIN [Suspect]
     Active Substance: VANCOMYCIN
     Indication: SEPSIS
     Route: 042
     Dates: start: 20170125, end: 20170202

REACTIONS (4)
  - Blood creatinine increased [None]
  - Drug level increased [None]
  - Blood urea increased [None]
  - Toxicity to various agents [None]

NARRATIVE: CASE EVENT DATE: 20170202
